FAERS Safety Report 10187889 (Version 1)
Quarter: 2014Q2

REPORT INFORMATION
  Report Type: Spontaneous
  Country: US (occurrence: US)
  Receive Date: 20140522
  Receipt Date: 20140522
  Transmission Date: 20141212
  Serious: No
  Sender: FDA-Public Use
  Company Number: US-SA-2013SA103724

PATIENT
  Age: 66 Year
  Sex: Female
  Weight: 90.71 kg

DRUGS (8)
  1. SOLOSTAR [Suspect]
     Indication: TYPE 2 DIABETES MELLITUS
     Route: 051
     Dates: start: 201308
  2. LANTUS SOLOSTAR [Suspect]
     Indication: TYPE 2 DIABETES MELLITUS
     Dosage: DOSE:28 UNIT(S)
     Route: 051
  3. LANTUS SOLOSTAR [Suspect]
     Indication: TYPE 2 DIABETES MELLITUS
     Dosage: DOSE:10 UNIT(S)
     Route: 051
     Dates: start: 201308, end: 201308
  4. LISINOPRIL [Concomitant]
     Indication: HYPERTENSION
     Route: 065
  5. MULTIVITAMINS [Concomitant]
  6. ASPIRIN [Concomitant]
     Indication: CARDIAC DISORDER
     Route: 065
  7. METFORMIN [Concomitant]
     Indication: DIABETES MELLITUS
     Route: 065
  8. CRESTOR [Concomitant]
     Indication: HYPERLIPIDAEMIA
     Route: 065

REACTIONS (7)
  - Feeling abnormal [Unknown]
  - Weight decreased [Unknown]
  - Depression [Recovered/Resolved]
  - Vision blurred [Recovering/Resolving]
  - Blood glucose increased [Unknown]
  - Dizziness [Unknown]
  - Malaise [Unknown]
